FAERS Safety Report 8105958-5 (Version None)
Quarter: 2012Q1

REPORT INFORMATION
  Report Type: 
  Country: None (occurrence: None)
  Receive Date: 20120202
  Receipt Date: 20120125
  Transmission Date: 20120608
  Serious: No
  Sender: FDA-Public Use
  Company Number: US-BIOGENIDEC-2012BI003196

PATIENT
  Age: 53 Year
  Sex: Male

DRUGS (7)
  1. ABILIFY [Concomitant]
     Indication: BIPOLAR I DISORDER
  2. GAAPENTIN [Concomitant]
     Indication: BIPOLAR I DISORDER
  3. TYSABRI [Suspect]
     Indication: MULTIPLE SCLEROSIS
     Route: 042
     Dates: start: 20120118
  4. SEROQUEL [Concomitant]
     Indication: INSOMNIA
  5. BUPROPION HCL [Concomitant]
     Indication: BIPOLAR I DISORDER
  6. LUNESTA [Concomitant]
     Indication: INSOMNIA
  7. DEPAKOTE TIME RELEASED [Concomitant]
     Indication: BIPOLAR I DISORDER

REACTIONS (1)
  - HYPERSOMNIA [None]
